FAERS Safety Report 12110163 (Version 1)
Quarter: 2016Q1

REPORT INFORMATION
  Report Type: Spontaneous
  Country: US (occurrence: US)
  Receive Date: 20160224
  Receipt Date: 20160224
  Transmission Date: 20160526
  Serious: No
  Sender: FDA-Public Use
  Company Number: US-PERRIGO-14US012767

PATIENT
  Age: 62 Year
  Sex: Female
  Weight: 79.37 kg

DRUGS (3)
  1. DESONIDE. [Suspect]
     Active Substance: DESONIDE
     Indication: DERMATITIS CONTACT
     Dosage: 1 THUMBTACK SIZED APPLICATION,BID
     Route: 061
     Dates: start: 20141017, end: 20141022
  2. PREMARIN [Concomitant]
     Active Substance: ESTROGENS, CONJUGATED
     Indication: VULVOVAGINAL DRYNESS
     Dosage: UNK
     Route: 065
     Dates: start: 2010
  3. LUMIGAN [Suspect]
     Active Substance: BIMATOPROST
     Indication: GLAUCOMA
     Dosage: 1 DROP TO EACH EYE, QD AT BEDTIME
     Route: 047
     Dates: start: 2012, end: 20141130

REACTIONS (2)
  - Dysgeusia [Recovering/Resolving]
  - Lacrimal disorder [Recovering/Resolving]

NARRATIVE: CASE EVENT DATE: 20141020
